FAERS Safety Report 4604976-9 (Version None)
Quarter: 2005Q1

REPORT INFORMATION
  Report Type: 
  Country: None (occurrence: None)
  Receive Date: 20050310
  Receipt Date: 20050310
  Transmission Date: 20050727
  Serious: Yes (Other)
  Sender: FDA-Public Use
  Company Number: None

PATIENT
  Age: 49 Year
  Sex: Female
  Weight: 90.2658 kg

DRUGS (7)
  1. DESYREL [Suspect]
     Indication: BIPOLAR DISORDER
     Dosage: 100 MGS HS
     Dates: start: 20040801
  2. DESYREL [Suspect]
     Indication: SLEEP DISORDER
     Dosage: 100 MGS HS
     Dates: start: 20040801
  3. PROZAC [Concomitant]
  4. TOPAMAX [Concomitant]
  5. LAMICTAL [Concomitant]
  6. XANAX [Concomitant]
  7. EFFEXOR XR [Concomitant]

REACTIONS (2)
  - DRUG INEFFECTIVE [None]
  - PHARMACEUTICAL PRODUCT COMPLAINT [None]
